FAERS Safety Report 6276589-7 (Version None)
Quarter: 2009Q3

REPORT INFORMATION
  Report Type: 
  Country: None (occurrence: None)
  Receive Date: 20090722
  Receipt Date: 20080602
  Transmission Date: 20100115
  Serious: No
  Sender: FDA-Public Use
  Company Number: US-BRISTOL-MYERS SQUIBB COMPANY-14212096

PATIENT
  Age: 42 Year
  Sex: Male

DRUGS (7)
  1. COUMADIN [Suspect]
     Indication: PULMONARY EMBOLISM
     Dosage: DOSEINCREASED:23MAY08,TO 20MG,4DAYS;30MG,26MAY08,3DAYS;50MG,29MAY08,2DAYS;01JUN08,75MG/DAY.
  2. HEPARIN [Concomitant]
  3. LASIX [Concomitant]
  4. DEMEROL [Concomitant]
  5. OXYCONTIN [Concomitant]
  6. PHENERGAN [Concomitant]
  7. AMBIEN [Concomitant]

REACTIONS (1)
  - INTERNATIONAL NORMALISED RATIO DECREASED [None]
